FAERS Safety Report 6855142-8 (Version None)
Quarter: 2010Q3

REPORT INFORMATION
  Report Type: 
  Country: None (occurrence: None)
  Receive Date: 20100717
  Receipt Date: 20081125
  Transmission Date: 20110219
  Serious: Yes (Other)
  Sender: FDA-Public Use
  Company Number: US-PFIZER INC-2007108457

PATIENT
  Age: 38 Year
  Sex: Male
  Weight: 72.562 kg

DRUGS (1)
  1. CHANTIX [Suspect]
     Indication: SMOKING CESSATION THERAPY
     Dosage: 2 DF, 2X/DAY
     Route: 048
     Dates: start: 20071001, end: 20071102

REACTIONS (3)
  - AGGRESSION [None]
  - FEAR [None]
  - HALLUCINATION [None]
